FAERS Safety Report 7356419-2 (Version None)
Quarter: 2011Q1

REPORT INFORMATION
  Report Type: 
  Country: None (occurrence: None)
  Receive Date: 20110316
  Receipt Date: 20110314
  Transmission Date: 20110831
  Serious: Yes (Other)
  Sender: FDA-Public Use
  Company Number: CH-PFIZER INC-2011037107

PATIENT
  Age: 77 Year
  Sex: Male
  Weight: 89 kg

DRUGS (11)
  1. PLAVIX [Concomitant]
     Dosage: 75 MG, 1X/DAY
     Route: 048
  2. METO ZEROK [Concomitant]
     Dosage: 50 MG, 1X/DAY
     Route: 048
  3. NEXIUM [Concomitant]
     Dosage: 20 MG, 1X/DAY
     Route: 048
  4. ASPIRIN [Concomitant]
     Dosage: 100 MG, 1X/DAY
     Route: 048
  5. NOVORAPID [Concomitant]
     Dosage: UNK
  6. GLUCOPHAGE [Concomitant]
     Dosage: 500 MG, 3X/DAY
     Route: 048
  7. SORTIS [Suspect]
     Indication: HYPERCHOLESTEROLAEMIA
     Dosage: 20 MG, 1X/DAY
     Route: 048
     Dates: start: 20101025, end: 20101221
  8. SORTIS [Suspect]
     Indication: ISCHAEMIC CARDIOMYOPATHY
  9. LANTUS [Concomitant]
     Dosage: UNK
  10. CELEBREX [Concomitant]
     Dosage: 200 MG, 1X/DAY
     Route: 048
  11. ENALAPRIL MALEATE [Concomitant]
     Dosage: 20 MG, 1X/DAY
     Route: 048

REACTIONS (2)
  - TENDON RUPTURE [None]
  - TENDONITIS [None]
